FAERS Safety Report 8302070-7 (Version None)
Quarter: 2012Q2

REPORT INFORMATION
  Report Type: 
  Country: None (occurrence: None)
  Receive Date: 20120420
  Receipt Date: 20120413
  Transmission Date: 20120825
  Serious: Yes (Hospitalization)
  Sender: FDA-Public Use
  Company Number: US-MERCK-1202USA03876

PATIENT
  Age: 66 Year
  Sex: Female
  Weight: 55 kg

DRUGS (10)
  1. VITAMIN D (UNSPECIFIED) [Concomitant]
     Indication: OSTEOPOROSIS
     Route: 065
  2. CHOLECALCIFEROL [Concomitant]
     Route: 065
  3. [THERAPY UNSPECIFIED] [Concomitant]
     Route: 065
  4. CALCIUM (UNSPECIFIED) [Concomitant]
     Indication: OSTEOPOROSIS
     Route: 065
  5. HORMONES (UNSPECIFIED) [Concomitant]
     Route: 065
     Dates: start: 19970101
  6. HORMONES (UNSPECIFIED) [Concomitant]
     Route: 065
     Dates: start: 19870601, end: 19980101
  7. VITAMINS (UNSPECIFIED) [Concomitant]
     Route: 065
  8. FOSAMAX [Suspect]
     Indication: OSTEOPOROSIS
     Route: 048
     Dates: start: 19971101, end: 20070401
  9. CALCIUM (UNSPECIFIED) [Concomitant]
     Route: 065
  10. MAGNESIUM (UNSPECIFIED) [Concomitant]
     Route: 065

REACTIONS (19)
  - WRIST FRACTURE [None]
  - BODY HEIGHT DECREASED [None]
  - BREAST CYST [None]
  - SPINAL OSTEOARTHRITIS [None]
  - LIMB ASYMMETRY [None]
  - DEPRESSION [None]
  - SPINAL FRACTURE [None]
  - POST-TRAUMATIC STRESS DISORDER [None]
  - BONE LOSS [None]
  - ULNA FRACTURE [None]
  - FEMUR FRACTURE [None]
  - ANXIETY [None]
  - TOOTH DISORDER [None]
  - SPINAL COMPRESSION FRACTURE [None]
  - GINGIVITIS [None]
  - THORACIC VERTEBRAL FRACTURE [None]
  - RIB FRACTURE [None]
  - VITAMIN D DEFICIENCY [None]
  - KYPHOSIS [None]
